FAERS Safety Report 23608770 (Version 1)
Quarter: 2024Q1

REPORT INFORMATION
  Report Type: Spontaneous
  Country: US (occurrence: US)
  Receive Date: 20240308
  Receipt Date: 20240308
  Transmission Date: 20240410
  Serious: Yes (Hospitalization, Other)
  Sender: FDA-Public Use
  Company Number: US-APOTEX-2024AP003141

PATIENT
  Age: 45 Year
  Sex: Female

DRUGS (3)
  1. TRAZODONE HYDROCHLORIDE [Suspect]
     Active Substance: TRAZODONE HYDROCHLORIDE
     Indication: Sleep disorder
     Dosage: UNK
     Route: 048
  2. BUPROPION [Concomitant]
     Active Substance: BUPROPION
     Indication: Product used for unknown indication
     Dosage: UNK
     Route: 065
  3. CLONAZEPAM [Concomitant]
     Active Substance: CLONAZEPAM
     Indication: Product used for unknown indication
     Dosage: UNK
     Route: 065

REACTIONS (7)
  - Intentional overdose [Unknown]
  - Toxicity to various agents [Unknown]
  - Electrocardiogram QT prolonged [Recovered/Resolved]
  - Ataxia [Unknown]
  - Dizziness [Unknown]
  - Urinary incontinence [Unknown]
  - Hypotension [Recovered/Resolved]
